FAERS Safety Report 19579729 (Version 1)
Quarter: 2021Q3

REPORT INFORMATION
  Report Type: Spontaneous
  Country: JP (occurrence: JP)
  Receive Date: 20210720
  Receipt Date: 20210720
  Transmission Date: 20211014
  Serious: Yes (Other)
  Sender: FDA-Public Use
  Company Number: JP-REGENERON PHARMACEUTICALS, INC.-2021-68713

PATIENT

DRUGS (1)
  1. EYLEA [Suspect]
     Active Substance: AFLIBERCEPT
     Indication: RETINAL VEIN OCCLUSION
     Dosage: ONCE
     Route: 031

REACTIONS (9)
  - Nausea [Unknown]
  - Eyelid irritation [Unknown]
  - Blindness [Unknown]
  - Fear [Unknown]
  - Eye pain [Unknown]
  - Palpitations [Unknown]
  - Headache [Unknown]
  - Nasal discomfort [Unknown]
  - Eyelid pain [Unknown]
